FAERS Safety Report 21177292 (Version 1)
Quarter: 2022Q3

REPORT INFORMATION
  Report Type: Spontaneous
  Country: CA (occurrence: CA)
  Receive Date: 20220805
  Receipt Date: 20220805
  Transmission Date: 20221027
  Serious: Yes (Other)
  Sender: FDA-Public Use
  Company Number: None

PATIENT
  Sex: Male

DRUGS (2)
  1. OLMESARTAN [Suspect]
     Active Substance: OLMESARTAN
     Indication: Hypertension
     Dosage: 1 EVERY 1 DAYS
  2. AMLODIPINE [Concomitant]
     Active Substance: AMLODIPINE BESYLATE
     Route: 065

REACTIONS (7)
  - Blood pressure decreased [Unknown]
  - Diarrhoea [Unknown]
  - Illness [Unknown]
  - Nausea [Unknown]
  - Tremor [Unknown]
  - Vomiting [Unknown]
  - Weight decreased [Unknown]
